FAERS Safety Report 4846206-9 (Version None)
Quarter: 2005Q4

REPORT INFORMATION
  Report Type: 
  Country: None (occurrence: None)
  Receive Date: 20051206
  Receipt Date: 20051201
  Transmission Date: 20060501
  Serious: Yes (Hospitalization, Other)
  Sender: FDA-Public Use
  Company Number: CA-AVENTIS-200520631GDDC

PATIENT
  Age: 77 Year
  Sex: Male

DRUGS (7)
  1. INSULIN GLARGINE [Suspect]
     Indication: DIABETES MELLITUS
     Dosage: DOSE UNIT: UNITS
     Route: 058
     Dates: start: 20050329, end: 20051130
  2. OPTIPEN (INSULIN PUMP) [Suspect]
     Indication: DIABETES MELLITUS
  3. CODE UNBROKEN [Suspect]
     Route: 048
     Dates: start: 20050329
  4. ASPIRIN [Concomitant]
     Indication: MYOCARDIAL ISCHAEMIA
  5. LIPEX [Concomitant]
     Indication: BLOOD CHOLESTEROL INCREASED
  6. TRITACE [Concomitant]
     Indication: BLOOD PRESSURE INCREASED
     Dates: start: 20030501
  7. ATENOLOL [Concomitant]

REACTIONS (1)
  - GRAND MAL CONVULSION [None]
